FAERS Safety Report 10472100 (Version 2)
Quarter: 2014Q4

REPORT INFORMATION
  Report Type: Spontaneous
  Country: JP (occurrence: JP)
  Receive Date: 20140924
  Receipt Date: 20141020
  Transmission Date: 20150528
  Serious: Yes (Other)
  Sender: FDA-Public Use
  Company Number: JP-BEH-2014045229

PATIENT
  Age: 74 Year
  Sex: Male

DRUGS (17)
  1. DOBUPUM [Concomitant]
     Active Substance: DOBUTAMINE HYDROCHLORIDE
     Indication: BLOOD PRESSURE DECREASED
     Dosage: 1 ?G/KG/MINUTE
     Route: 042
     Dates: start: 20140805, end: 20140806
  2. FIRSTCIN [Concomitant]
     Active Substance: CEFOZOPRAN HYDROCHLORIDE
     Indication: PROPHYLAXIS
     Route: 042
     Dates: start: 20140805, end: 20140810
  3. ALBUMINAR [Suspect]
     Active Substance: ALBUMIN (HUMAN)
     Route: 042
     Dates: start: 20140806, end: 20140806
  4. ALBUMINAR [Suspect]
     Active Substance: ALBUMIN (HUMAN)
  5. IRRADIATED RED CELLS CONCENTRATE, LEUCOCYTES REDUCED [Concomitant]
     Dates: start: 20140730
  6. IRRADIATED RED CELLS CONCENTRATE, LEUCOCYTES REDUCED [Concomitant]
     Dates: start: 20140801
  7. IRRADIATED RED BLOOD CELLS, LEUKOCYTES REDUCED [Concomitant]
     Dates: start: 20140804
  8. PRECEDEX [Concomitant]
     Active Substance: DEXMEDETOMIDINE HYDROCHLORIDE
     Indication: SEDATION
     Route: 042
     Dates: start: 20140805, end: 20140806
  9. ALBUMINAR [Suspect]
     Active Substance: ALBUMIN (HUMAN)
     Indication: VOLUME BLOOD DECREASED
     Route: 042
     Dates: start: 20140730, end: 20140805
  10. FENTANYL. [Concomitant]
     Active Substance: FENTANYL
     Indication: ANALGESIC THERAPY
     Route: 042
     Dates: start: 20140805, end: 20140809
  11. IRRADIATED RED CELLS CONCENTRATE, LEUCOCYTES REDUCED [Concomitant]
     Dates: start: 20140731
  12. FRESH FROZEN PLASMA [Concomitant]
     Active Substance: HUMAN PLASMA
     Indication: VOLUME BLOOD INCREASED
     Dosage: 240/1 PACK
     Route: 042
     Dates: start: 20140806, end: 20140806
  13. IRRADIATED RED CELLS CONCENTRATE, LEUCOCYTES REDUCED [Concomitant]
     Dates: start: 20140504
  14. ALBUMINAR [Suspect]
     Active Substance: ALBUMIN (HUMAN)
     Dosage: 4 VIALS
  15. ALBUMINAR [Suspect]
     Active Substance: ALBUMIN (HUMAN)
     Dosage: 2 VIALS
  16. FRESH FROZEN PLASMA, LEUKOCYTES REDUCED [Concomitant]
     Dates: start: 20140730
  17. IRRADIATED RED BLOOD CELLS, LEUKOCYTES REDUCED [Concomitant]
     Dates: start: 20140805

REACTIONS (14)
  - Pruritus [Recovered/Resolved]
  - Swelling face [Recovered/Resolved]
  - Cough [Recovered/Resolved]
  - Hypotension [Recovered/Resolved]
  - Type I hypersensitivity [Unknown]
  - Flushing [Recovered/Resolved]
  - Angioedema [Recovered/Resolved]
  - Wheezing [Recovered/Resolved]
  - Rash generalised [Recovered/Resolved]
  - Anaphylactic shock [Recovered/Resolved]
  - Heart rate increased [Recovered/Resolved]
  - Dyspnoea [Recovered/Resolved]
  - Circulatory collapse [Unknown]
  - Urticaria [Recovered/Resolved]

NARRATIVE: CASE EVENT DATE: 20140806
